FAERS Safety Report 18984642 (Version 2)
Quarter: 2021Q1

REPORT INFORMATION
  Report Type: Report from Study
  Country: US (occurrence: US)
  Receive Date: 20210308
  Receipt Date: 20210315
  Transmission Date: 20210420
  Serious: Yes (Hospitalization)
  Sender: FDA-Public Use
  Company Number: US-EXELIXIS-CABO-21038157

PATIENT
  Sex: Female

DRUGS (1)
  1. CABOMETYX [Suspect]
     Active Substance: CABOZANTINIB S-MALATE
     Indication: COLON CANCER
     Dosage: 60 MG, QD
     Dates: start: 20210120

REACTIONS (4)
  - Metastases to central nervous system [Unknown]
  - Off label use [Unknown]
  - Ascites [Unknown]
  - Illness [Unknown]
